FAERS Safety Report 13423349 (Version 1)
Quarter: 2017Q2

REPORT INFORMATION
  Report Type: Not Available
  Country: None (occurrence: US)
  Receive Date: 20170410
  Receipt Date: 20170410
  Transmission Date: 20170830
  Serious: No
  Sender: FDA-Public Use
  Company Number: US-AKORN-54676

PATIENT
  Age: 52 Year
  Sex: Female

DRUGS (1)
  1. PROGESTERONE CAPSULES [Suspect]
     Active Substance: PROGESTERONE

REACTIONS (4)
  - Restlessness [Unknown]
  - Muscle spasms [Unknown]
  - Drug ineffective [Unknown]
  - Vaginal haemorrhage [Unknown]
